FAERS Safety Report 16245795 (Version 1)
Quarter: 2019Q2

REPORT INFORMATION
  Report Type: Spontaneous
  Country: TW (occurrence: TW)
  Receive Date: 20190426
  Receipt Date: 20190426
  Transmission Date: 20190711
  Serious: Yes (Other)
  Sender: FDA-Public Use
  Company Number: TW-ELI_LILLY_AND_COMPANY-TW201904014188

PATIENT
  Age: 46 Year
  Sex: Female
  Weight: 68 kg

DRUGS (6)
  1. FLUOROURACIL. [Concomitant]
     Active Substance: FLUOROURACIL
     Indication: TONGUE CANCER METASTATIC
     Dosage: UNK
     Dates: start: 20180227, end: 20180714
  2. ERBITUX [Suspect]
     Active Substance: CETUXIMAB
     Indication: TONGUE CANCER METASTATIC
     Dosage: 500 MG, UNK
     Route: 041
     Dates: start: 20180202, end: 20180714
  3. PACLITAXEL. [Suspect]
     Active Substance: PACLITAXEL
     Indication: TONGUE CANCER METASTATIC
     Dosage: 120 MG, UNK
     Route: 041
     Dates: start: 20180202, end: 201802
  4. CISPLATIN. [Concomitant]
     Active Substance: CISPLATIN
     Indication: TONGUE CANCER METASTATIC
     Dosage: 90 MG, UNK
     Route: 041
     Dates: start: 20150112, end: 20150302
  5. NIVOLUMAB [Suspect]
     Active Substance: NIVOLUMAB
     Indication: TONGUE CANCER METASTATIC
     Dosage: 40 MG, UNK
     Route: 065
     Dates: start: 20180207, end: 201802
  6. CISPLATIN. [Concomitant]
     Active Substance: CISPLATIN
     Dosage: 90 MG, UNK
     Route: 041
     Dates: start: 20180202

REACTIONS (12)
  - Dyspnoea [Unknown]
  - Leukopenia [Unknown]
  - Alopecia [Unknown]
  - Stomatitis [Unknown]
  - Acne [Unknown]
  - Neuropathy peripheral [Unknown]
  - Abdominal pain [Unknown]
  - Anaemia [Unknown]
  - Vomiting [Unknown]
  - Anaphylactic reaction [Unknown]
  - Nausea [Unknown]
  - Fatigue [Unknown]

NARRATIVE: CASE EVENT DATE: 2018
